FAERS Safety Report 11731585 (Version 1)
Quarter: 2015Q4

REPORT INFORMATION
  Report Type: Spontaneous
  Country: US (occurrence: US)
  Receive Date: 20151110
  Receipt Date: 20151110
  Transmission Date: 20160304
  Serious: No
  Sender: FDA-Public Use
  Company Number: US-ELI_LILLY_AND_COMPANY-US201203005370

PATIENT
  Sex: Female

DRUGS (1)
  1. FORTEO [Suspect]
     Active Substance: TERIPARATIDE
     Indication: OSTEOPOROSIS
     Dosage: 20 UG, QD

REACTIONS (13)
  - Atrial fibrillation [Unknown]
  - Heart rate increased [Unknown]
  - Burning sensation [Unknown]
  - Feeling hot [Unknown]
  - Palpitations [Recovering/Resolving]
  - Parathyroid disorder [Recovered/Resolved]
  - Dyspnoea [Recovering/Resolving]
  - Blood parathyroid hormone increased [Unknown]
  - Sleep disorder [Unknown]
  - Thyroid disorder [Unknown]
  - Erythema [Unknown]
  - Night sweats [Recovering/Resolving]
  - Tinnitus [Recovering/Resolving]
